FAERS Safety Report 23362732 (Version 1)
Quarter: 2024Q1

REPORT INFORMATION
  Report Type: Spontaneous
  Country: US (occurrence: US)
  Receive Date: 20240103
  Receipt Date: 20240103
  Transmission Date: 20240410
  Serious: No
  Sender: FDA-Public Use
  Company Number: US-NEUROCRINE BIOSCIENCES INC.-2023NBI11157

PATIENT
  Age: 54 Year
  Sex: Male

DRUGS (3)
  1. INGREZZA [Suspect]
     Active Substance: VALBENAZINE
     Indication: Product used for unknown indication
     Dosage: 80 MILLIGRAM  FOR 3 MONTHS
     Route: 065
     Dates: start: 2023
  2. INGREZZA [Suspect]
     Active Substance: VALBENAZINE
     Dosage: UNK
     Route: 065
     Dates: start: 2021
  3. ARTEMETHER [Concomitant]
     Active Substance: ARTEMETHER

REACTIONS (2)
  - Drug ineffective [Unknown]
  - Dyskinesia [Unknown]
